FAERS Safety Report 7266959-2 (Version None)
Quarter: 2011Q1

REPORT INFORMATION
  Report Type: 
  Country: None (occurrence: None)
  Receive Date: 20110201
  Receipt Date: 20110124
  Transmission Date: 20110831
  Serious: Yes (Hospitalization)
  Sender: FDA-Public Use
  Company Number: JP-BRISTOL-MYERS SQUIBB COMPANY-15481989

PATIENT
  Age: 60 Year
  Sex: Male
  Weight: 85 kg

DRUGS (18)
  1. VEGETAMIN-B [Concomitant]
     Dosage: TABLET
     Dates: start: 19990101, end: 20101218
  2. WYPAX [Concomitant]
     Dosage: TABLET
     Dates: end: 20101218
  3. HERBESSER R [Concomitant]
     Dosage: CAPSULE
     Dates: end: 20101218
  4. MYSLEE [Concomitant]
     Dosage: TABLET
     Dates: end: 20101218
  5. KETAS [Concomitant]
     Dosage: CAPSULE
     Dates: end: 20101218
  6. LITHIUM CARBONATE [Interacting]
     Dosage: TAB
     Route: 048
     Dates: start: 20101121, end: 20101218
  7. FLUNITRAZEPAM [Concomitant]
     Dosage: TABLET
     Dates: start: 19990101, end: 20101218
  8. BROMVALERYLUREA [Concomitant]
     Dosage: POWDER FOR ORAL SOLUTION
     Dates: end: 20101218
  9. BOUFUUTSUUSHOUSAN [Concomitant]
     Dosage: GRANULES
     Dates: end: 20101218
  10. TAMSULOSIN HCL [Concomitant]
     Dosage: TAB
     Dates: end: 20101218
  11. SENIRAN [Concomitant]
     Dosage: TABLET
     Dates: end: 20101218
  12. APLACE [Concomitant]
     Dosage: TABLET
     Dates: end: 20101218
  13. HALCION [Concomitant]
     Dosage: TABLET
     Dates: end: 20101218
  14. ABILIFY [Suspect]
     Indication: SCHIZOPHRENIA
     Dosage: 3MG,BID,06AUG10-04NOV10(91D) 6MG,BID,05NOV10-19NOV10(15D) 6MG,TID,20NOV10-18DEC10(29D)
     Route: 048
     Dates: start: 20100723, end: 20101218
  15. EPL [Concomitant]
     Dosage: CAPSULE
     Dates: end: 20101218
  16. CO-DIOVAN [Concomitant]
     Dosage: TABLET
     Dates: end: 20101218
  17. ZETIA [Concomitant]
     Dosage: TABLET
     Dates: end: 20101218
  18. LIPIDIL [Concomitant]
     Dosage: CAPSULE
     Dates: end: 20101218

REACTIONS (2)
  - PARKINSONISM [None]
  - DRUG INTERACTION [None]
